FAERS Safety Report 4758796-5 (Version None)
Quarter: 2005Q3

REPORT INFORMATION
  Report Type: 
  Country: None (occurrence: None)
  Receive Date: 20050901
  Receipt Date: 20050826
  Transmission Date: 20060218
  Serious: Yes (Hospitalization)
  Sender: FDA-Public Use
  Company Number: CH-MERCK-0508CHE00030

PATIENT
  Age: 73 Year
  Sex: Male

DRUGS (16)
  1. NADROPARIN [Concomitant]
     Route: 058
     Dates: end: 20041001
  2. LORAZEPAM [Concomitant]
     Route: 048
     Dates: end: 20041001
  3. SODIUM CHLORIDE [Concomitant]
     Route: 041
  4. THIAMINE HYDROCHLORIDE [Concomitant]
     Route: 048
     Dates: end: 20040101
  5. ESOMEPRAZOLE MAGNESIUM [Concomitant]
     Route: 048
  6. PHYTONADIONE [Concomitant]
     Route: 065
     Dates: end: 20041001
  7. ACETAMINOPHEN [Concomitant]
     Route: 048
     Dates: end: 20041001
  8. ENTEROCOCCUS FAECIUM (AS DRUG) [Concomitant]
     Route: 048
     Dates: end: 20041001
  9. FOLIC ACID [Concomitant]
     Route: 048
     Dates: end: 20041001
  10. NIFEDIPINE [Concomitant]
     Route: 048
     Dates: end: 20041001
  11. ZOLPIDEM TARTRATE [Concomitant]
     Route: 048
     Dates: end: 20041001
  12. NOROXIN [Suspect]
     Indication: URINARY TRACT INFECTION
     Route: 048
     Dates: start: 20041008, end: 20041012
  13. VENLAFAXINE HYDROCHLORIDE [Concomitant]
     Route: 048
     Dates: start: 20040916, end: 20041012
  14. VENLAFAXINE HYDROCHLORIDE [Concomitant]
     Route: 048
     Dates: start: 20040101, end: 20040916
  15. ASCORBIC ACID AND VITAMIN B (UNSPECIFIED) [Concomitant]
     Route: 048
     Dates: end: 20041001
  16. ASPIRIN [Concomitant]
     Route: 048
     Dates: start: 20030101, end: 20041115

REACTIONS (1)
  - LEUKOCYTOCLASTIC VASCULITIS [None]
